FAERS Safety Report 5034661-3 (Version None)
Quarter: 2006Q2

REPORT INFORMATION
  Report Type: 
  Country: None (occurrence: None)
  Receive Date: 20060621
  Receipt Date: 20060619
  Transmission Date: 20061013
  Serious: Yes (Other)
  Sender: FDA-Public Use
  Company Number: 200611536GDS

PATIENT
  Sex: 0

DRUGS (1)
  1. AVELOX [Suspect]

REACTIONS (3)
  - INTRAOCULAR PRESSURE INCREASED [None]
  - IRITIS [None]
  - VISUAL FIELD DEFECT [None]
